FAERS Safety Report 12317856 (Version 2)
Quarter: 2016Q2

REPORT INFORMATION
  Report Type: Spontaneous
  Country: JP (occurrence: JP)
  Receive Date: 20160429
  Receipt Date: 20160601
  Transmission Date: 20160815
  Serious: Yes (Hospitalization)
  Sender: FDA-Public Use
  Company Number: JP-SA-2016SA084002

PATIENT
  Age: 78 Year
  Sex: Female

DRUGS (5)
  1. WARFARIN [Concomitant]
     Active Substance: WARFARIN
     Route: 048
  2. MYSLEE [Suspect]
     Active Substance: ZOLPIDEM TARTRATE
     Indication: BLEPHAROSPASM
     Route: 048
     Dates: start: 201604, end: 20160419
  3. MYSLEE [Suspect]
     Active Substance: ZOLPIDEM TARTRATE
     Indication: BLEPHAROSPASM
     Dosage: DAYTIME
     Route: 048
     Dates: start: 201604, end: 201604
  4. MYSLEE [Suspect]
     Active Substance: ZOLPIDEM TARTRATE
     Indication: BLEPHAROSPASM
     Route: 048
     Dates: end: 2015
  5. MICAMLO [Concomitant]
     Active Substance: AMLODIPINE BESYLATE\TELMISARTAN
     Route: 065

REACTIONS (5)
  - Somnolence [Unknown]
  - Spinal compression fracture [Unknown]
  - Off label use [Unknown]
  - Fall [Unknown]
  - Intentional product misuse [Unknown]

NARRATIVE: CASE EVENT DATE: 201604
